FAERS Safety Report 20097778 (Version 5)
Quarter: 2022Q3

REPORT INFORMATION
  Report Type: Report from Study
  Country: US (occurrence: US)
  Receive Date: 20211122
  Receipt Date: 20220923
  Transmission Date: 20221027
  Serious: No
  Sender: FDA-Public Use
  Company Number: US-NOVARTISTESTPH-NVSC2021US264566

PATIENT
  Sex: Male

DRUGS (1)
  1. ZOLGENSMA [Suspect]
     Active Substance: ONASEMNOGENE ABEPARVOVEC-XIOI
     Indication: Spinal muscular atrophy
     Dosage: 04.29 KG, ONCE/SINGLE
     Route: 042
     Dates: start: 20210518, end: 20210518

REACTIONS (3)
  - Dyskinesia [Unknown]
  - Muscular weakness [Unknown]
  - Inability to crawl [Unknown]
